FAERS Safety Report 5566668-1 (Version None)
Quarter: 2007Q4

REPORT INFORMATION
  Report Type: 
  Country: None (occurrence: None)
  Receive Date: 20071219
  Receipt Date: 20071212
  Transmission Date: 20080405
  Serious: Yes (Hospitalization)
  Sender: FDA-Public Use
  Company Number: FR-BRISTOL-MYERS SQUIBB COMPANY-14018345

PATIENT
  Age: 73 Year
  Sex: Female

DRUGS (3)
  1. FOSINOPRIL SODIUM [Suspect]
     Indication: HYPERTENSION
     Route: 048
     Dates: end: 20050903
  2. CORDARONE [Suspect]
     Indication: ATRIAL FIBRILLATION
     Route: 048
     Dates: start: 20050815, end: 20050903
  3. HYPERIUM [Concomitant]
     Indication: HYPERTENSION

REACTIONS (4)
  - ATRIAL FIBRILLATION [None]
  - ELECTROCARDIOGRAM QT PROLONGED [None]
  - HYPERTENSIVE CRISIS [None]
  - HYPOKALAEMIA [None]
